FAERS Safety Report 9491389 (Version 2)
Quarter: 2013Q4

REPORT INFORMATION
  Report Type: Spontaneous
  Country: DE (occurrence: None)
  Receive Date: 20130827
  Receipt Date: 20131127
  Transmission Date: 20140711
  Serious: Yes (Death, Other)
  Sender: FDA-Public Use
  Company Number: 2013MPI00498

PATIENT
  Age: 68 Year
  Sex: Female

DRUGS (1)
  1. BRENTUXIMAB VEDOTIN [Suspect]
     Indication: POST TRANSPLANT LYMPHOPROLIFERATIVE DISORDER
     Dosage: 1.8 MG/KG. Q12D

REACTIONS (5)
  - Acute graft versus host disease in skin [None]
  - Post transplant lymphoproliferative disorder [None]
  - Disease progression [None]
  - Polyneuropathy [None]
  - Thrombocytopenia [None]
